FAERS Safety Report 25750373 (Version 1)
Quarter: 2025Q3

REPORT INFORMATION
  Report Type: Spontaneous
  Country: EU (occurrence: EU)
  Receive Date: 20250902
  Receipt Date: 20250902
  Transmission Date: 20251021
  Serious: Yes (Hospitalization)
  Sender: STRIDES
  Company Number: EU-STRIDES ARCOLAB LIMITED-2025SP011001

PATIENT
  Age: 52 Year
  Sex: Male

DRUGS (1)
  1. DISULFIRAM [Suspect]
     Active Substance: DISULFIRAM
     Indication: Alcoholism
     Route: 065

REACTIONS (3)
  - Haemodynamic instability [Recovered/Resolved]
  - Alcohol intolerance [Recovered/Resolved]
  - Contraindicated product administered [Unknown]
